FAERS Safety Report 17594611 (Version 1)
Quarter: 2020Q1

REPORT INFORMATION
  Report Type: Report from Study
  Country: US (occurrence: US)
  Receive Date: 20200328
  Receipt Date: 20200328
  Transmission Date: 20200409
  Serious: No
  Sender: FDA-Public Use
  Company Number: NVSC2020US082912

PATIENT
  Age: 68 Year
  Sex: Female

DRUGS (1)
  1. COSENTYX [Suspect]
     Active Substance: SECUKINUMAB
     Indication: PSORIASIS
     Dosage: 300 MG (AT WEEK 4, THEN 300 MG (2 PENS) EVERY 4 WEEKS THEREAFTER)
     Route: 058

REACTIONS (4)
  - Erythema [Unknown]
  - Skin plaque [Unknown]
  - Stress [Unknown]
  - Psoriasis [Unknown]
